FAERS Safety Report 20132722 (Version 4)
Quarter: 2022Q1

REPORT INFORMATION
  Report Type: Report from Study
  Country: FI (occurrence: FI)
  Receive Date: 20211130
  Receipt Date: 20220118
  Transmission Date: 20220423
  Serious: Yes (Other)
  Sender: FDA-Public Use
  Company Number: FI-MYLANLABS-2021M1086356

PATIENT
  Age: 22 Year
  Sex: Female

DRUGS (14)
  1. CLOZAPINE [Suspect]
     Active Substance: CLOZAPINE
     Indication: Dissociative disorder
     Dosage: UNK, QD (CURRENT DOSE : 12.5 MILLIGRAM IN MORNING + 75 MG IN THE EVENING, QD)
     Route: 065
     Dates: start: 20211015
  2. OLANZAPINE [Suspect]
     Active Substance: OLANZAPINE
     Indication: Dissociative disorder
     Dosage: 5 MILLIGRAM, BID
  3. OLANZAPINE [Suspect]
     Active Substance: OLANZAPINE
     Dosage: UNK
     Route: 065
     Dates: start: 202109, end: 2021
  4. OLANZAPINE [Suspect]
     Active Substance: OLANZAPINE
     Dosage: UNK, QD (5 MG + 10 MG, QD)
     Route: 065
     Dates: start: 2021, end: 202111
  5. OLANZAPINE [Suspect]
     Active Substance: OLANZAPINE
     Dosage: 5 MILLIGRAM, QD (QD (5 MG + 5 MG, QD))
     Dates: start: 202111, end: 20211118
  6. OLANZAPINE [Suspect]
     Active Substance: OLANZAPINE
     Dosage: UNK, QD (5 MG + 5 MG, QD)
     Route: 065
     Dates: start: 202111, end: 20211118
  7. OLANZAPINE [Suspect]
     Active Substance: OLANZAPINE
     Dosage: 10 MILLIGRAM, QD (5 MG, BID)
     Route: 065
  8. OLANZAPINE [Suspect]
     Active Substance: OLANZAPINE
     Dosage: 10 MILLIGRAM, QD (5 MG, BID)
     Route: 065
  9. OLANZAPINE [Suspect]
     Active Substance: OLANZAPINE
     Dosage: 10 MILLIGRAM, QD (5 MG, BID)
     Route: 065
  10. LITHIUM CARBONATE [Concomitant]
     Active Substance: LITHIUM CARBONATE
     Indication: Product used for unknown indication
     Dosage: UNK
     Route: 065
  11. VALPROIC ACID [Concomitant]
     Active Substance: VALPROIC ACID
     Indication: Product used for unknown indication
     Dosage: UNK
     Route: 065
  12. Temesta [Concomitant]
     Indication: Product used for unknown indication
     Dosage: UNK
     Route: 065
  13. HALOPERIDOL [Concomitant]
     Active Substance: HALOPERIDOL
     Indication: Product used for unknown indication
     Dosage: UNK
     Route: 065
  14. Temesta [Concomitant]
     Indication: Product used for unknown indication
     Dosage: UNK

REACTIONS (2)
  - Neutropenia [Not Recovered/Not Resolved]
  - Off label use [Unknown]

NARRATIVE: CASE EVENT DATE: 20211015
